FAERS Safety Report 25866539 (Version 1)
Quarter: 2025Q3

REPORT INFORMATION
  Report Type: Spontaneous
  Country: US (occurrence: US)
  Receive Date: 20250930
  Receipt Date: 20250930
  Transmission Date: 20251021
  Serious: No
  Sender: ABBVIE
  Company Number: US-ABBVIE-6482493

PATIENT
  Sex: Male

DRUGS (1)
  1. MAVYRET [Suspect]
     Active Substance: GLECAPREVIR\PIBRENTASVIR
     Indication: Acute hepatitis C
     Route: 048
     Dates: end: 202507

REACTIONS (2)
  - Pain [Not Recovered/Not Resolved]
  - Muscle twitching [Unknown]
